FAERS Safety Report 7341009-8 (Version None)
Quarter: 2011Q1

REPORT INFORMATION
  Report Type: 
  Country: None (occurrence: None)
  Receive Date: 20110309
  Receipt Date: 20100329
  Transmission Date: 20110831
  Serious: No
  Sender: FDA-Public Use
  Company Number: US-ABBOTT-10P-163-0626435-00

PATIENT
  Sex: Female
  Weight: 59.928 kg

DRUGS (5)
  1. LUPRON DEPOT [Suspect]
     Indication: DYSFUNCTIONAL UTERINE BLEEDING
     Dates: start: 20100107, end: 20100107
  2. LUPRON DEPOT [Suspect]
     Indication: PELVIC PAIN
  3. MULTIPLE VITAMINS [Concomitant]
     Indication: VITAMIN SUPPLEMENTATION
  4. LUPRON DEPOT [Suspect]
     Indication: UTERINE LEIOMYOMA
  5. LUPRON DEPOT [Suspect]
     Indication: IRON DEFICIENCY ANAEMIA

REACTIONS (1)
  - DRUG INEFFECTIVE [None]
